FAERS Safety Report 13395388 (Version 2)
Quarter: 2017Q2

REPORT INFORMATION
  Report Type: Spontaneous
  Country: US (occurrence: US)
  Receive Date: 20170403
  Receipt Date: 20170404
  Transmission Date: 20170830
  Serious: No
  Sender: FDA-Public Use
  Company Number: US-PFIZER INC-2017142360

PATIENT
  Age: 27 Year
  Sex: Male
  Weight: 79 kg

DRUGS (1)
  1. GENOTROPIN [Suspect]
     Active Substance: SOMATROPIN
     Indication: GROWTH HORMONE DEFICIENCY
     Dosage: 0.2 MG, CYCLIC (6 DAYS/WEEK)
     Route: 058
     Dates: start: 20170127

REACTIONS (1)
  - Injection site discomfort [Unknown]

NARRATIVE: CASE EVENT DATE: 20170227
